FAERS Safety Report 15553664 (Version 3)
Quarter: 2020Q1

REPORT INFORMATION
  Report Type: Spontaneous
  Country: US (occurrence: US)
  Receive Date: 20181026
  Receipt Date: 20200103
  Transmission Date: 20200409
  Serious: Yes (Other)
  Sender: FDA-Public Use
  Company Number: US-CIPLA LTD.-2018US22070

PATIENT

DRUGS (10)
  1. GABAPENTIN. [Suspect]
     Active Substance: GABAPENTIN
     Dosage: 300 MG, TID
     Route: 065
     Dates: start: 20160321, end: 201604
  2. GABAPENTIN. [Suspect]
     Active Substance: GABAPENTIN
     Dosage: 400 MG, TID
     Route: 065
     Dates: start: 201604
  3. GABAPENTIN. [Suspect]
     Active Substance: GABAPENTIN
     Indication: MIGRAINE
     Dosage: UNK, (GABAPENTIN 100 MG)
     Route: 065
     Dates: start: 2011
  4. GABAPENTIN. [Suspect]
     Active Substance: GABAPENTIN
     Dosage: 300 MG, QD
     Route: 065
     Dates: start: 201603, end: 20160321
  5. GABAPENTIN. [Suspect]
     Active Substance: GABAPENTIN
     Dosage: 100 MG, UNK
     Route: 065
     Dates: end: 201607
  6. KLONOPIN [Concomitant]
     Active Substance: CLONAZEPAM
     Indication: SLEEP DISORDER
     Dosage: 0.5 MG, EVERY DAY AT NIGHT
     Route: 065
     Dates: start: 2011
  7. GABAPENTIN. [Suspect]
     Active Substance: GABAPENTIN
     Dosage: 100 MG, TID
     Route: 065
  8. GABAPENTIN. [Suspect]
     Active Substance: GABAPENTIN
     Dosage: UNK, (GABAPENTIN 100 MG)
     Route: 065
     Dates: start: 2012
  9. SUMATRIPTAN. [Concomitant]
     Active Substance: SUMATRIPTAN
     Indication: MIGRAINE
     Dosage: 100 MG, QOD (15 TABLETS PER MONTH)
     Route: 065
     Dates: start: 2011
  10. GABAPENTIN. [Suspect]
     Active Substance: GABAPENTIN
     Dosage: UNK, (GABAPENTIN 100 MG)UNK
     Route: 065
     Dates: start: 2013

REACTIONS (20)
  - Toxicity to various agents [Recovered/Resolved]
  - Dependence on oxygen therapy [Not Recovered/Not Resolved]
  - Off label use [Unknown]
  - Temperature intolerance [Recovered/Resolved]
  - Dry mouth [Recovered/Resolved]
  - Panic attack [Recovered/Resolved]
  - Suicidal ideation [Recovered/Resolved]
  - Parosmia [Recovered/Resolved]
  - Muscle disorder [Recovered/Resolved]
  - Sleep apnoea syndrome [Not Recovered/Not Resolved]
  - Feeding disorder [Recovered/Resolved]
  - Drug ineffective for unapproved indication [Unknown]
  - Swelling of eyelid [Recovered/Resolved]
  - Diarrhoea [Recovered/Resolved]
  - Dyspnoea [Not Recovered/Not Resolved]
  - Gait inability [Recovered/Resolved]
  - Hyperhidrosis [Recovered/Resolved]
  - Alopecia [Recovered/Resolved]
  - Burning sensation [Unknown]
  - Asthenia [Not Recovered/Not Resolved]
